FAERS Safety Report 4837298-1 (Version None)
Quarter: 2005Q4

REPORT INFORMATION
  Report Type: 
  Country: None (occurrence: None)
  Receive Date: 20051122
  Receipt Date: 20051110
  Transmission Date: 20060501
  Serious: Yes (Hospitalization)
  Sender: FDA-Public Use
  Company Number: FRWYE165902NOV04

PATIENT
  Age: 53 Year
  Sex: Male

DRUGS (6)
  1. TAZOCILLINE (PIPERACILLIN/TAZOBACTAM, INJECTION) [Suspect]
     Dosage: INTRAVENOUS
     Route: 042
     Dates: start: 20040101, end: 20040801
  2. OMEPRAZOLE [Suspect]
     Dates: end: 20040101
  3. TARGOCID [Suspect]
     Dosage: INTRAVENOUS
     Route: 042
  4. PROPRANOLOL HYDROCHLORIDE [Concomitant]
  5. POTASSIUM CHLORIDE [Concomitant]
  6. VITAMIN B1 AND B6 (PYRIDOXINE /THIAMINE) [Concomitant]

REACTIONS (7)
  - DERMATITIS EXFOLIATIVE [None]
  - DIAPEDESIS [None]
  - EOSINOPHILIA [None]
  - HAEMATURIA [None]
  - LEUKOPLAKIA ORAL [None]
  - PURPURA [None]
  - RHEUMATOID FACTOR POSITIVE [None]
